FAERS Safety Report 9919377 (Version 3)
Quarter: 2014Q2

REPORT INFORMATION
  Report Type: Spontaneous
  Country: IT (occurrence: IT)
  Receive Date: 20140224
  Receipt Date: 20140402
  Transmission Date: 20141212
  Serious: Yes (Hospitalization)
  Sender: FDA-Public Use
  Company Number: IT-PFIZER INC-2014050606

PATIENT
  Age: 17 Year
  Sex: Female

DRUGS (4)
  1. MEDROL [Suspect]
     Dosage: 20 DF, TOTAL
     Route: 048
     Dates: start: 20140217, end: 20140217
  2. ANANASE [Suspect]
     Dosage: 20 DF, TOTAL
     Route: 048
     Dates: start: 20140217, end: 20140217
  3. MOMENT 200 [Suspect]
     Dosage: 12 DF, TOTAL
     Route: 048
     Dates: start: 20140217, end: 20140217
  4. NIFEREX [Suspect]
     Dosage: 1 DF, TOTAL
     Route: 048
     Dates: start: 20140217, end: 20140217

REACTIONS (2)
  - Intentional self-injury [Recovering/Resolving]
  - Vomiting [Recovering/Resolving]
